FAERS Safety Report 8439354-8 (Version None)
Quarter: 2012Q2

REPORT INFORMATION
  Report Type: 
  Country: None (occurrence: None)
  Receive Date: 20120615
  Receipt Date: 20120612
  Transmission Date: 20120825
  Serious: No
  Sender: FDA-Public Use
  Company Number: PHEH2012US011817

PATIENT
  Sex: Female
  Weight: 64.399 kg

DRUGS (11)
  1. HYDROCHLOROTHIAZIDE [Concomitant]
  2. RANITIDINE [Concomitant]
  3. ASCORBIC ACID [Concomitant]
  4. TASIGNA [Suspect]
     Dosage: 300 MG, BID
     Route: 048
  5. ZOCOR [Concomitant]
  6. LOTREL [Concomitant]
  7. KLOR-CON [Concomitant]
  8. ALLOPURINOL [Concomitant]
  9. IRON [Concomitant]
  10. PROPRANOLOL [Concomitant]
  11. FLUOXETINE [Concomitant]

REACTIONS (2)
  - NAUSEA [None]
  - FATIGUE [None]
